FAERS Safety Report 20657173 (Version 2)
Quarter: 2023Q2

REPORT INFORMATION
  Report Type: Other
  Country: US (occurrence: None)
  Receive Date: 20220331
  Receipt Date: 20230523
  Transmission Date: 20230722
  Serious: Yes (Other)
  Sender: FDA-Public Use
  Company Number: US-ROCHE-3061306

PATIENT
  Age: 11 Year
  Sex: Female
  Weight: 46.8 kg

DRUGS (5)
  1. NUTROPIN AQ [Suspect]
     Active Substance: SOMATROPIN
     Indication: Turner^s syndrome
     Route: 058
  2. NUTROPIN AQ [Suspect]
     Active Substance: SOMATROPIN
  3. KEPPRA [Concomitant]
     Active Substance: LEVETIRACETAM
  4. ESTRADIOL [Concomitant]
     Active Substance: ESTRADIOL
  5. NORDITROPIN [Concomitant]
     Active Substance: SOMATROPIN

REACTIONS (3)
  - Menstruation irregular [Unknown]
  - Seizure [Unknown]
  - Weight increased [Unknown]
